FAERS Safety Report 8115642-X (Version None)
Quarter: 2012Q1

REPORT INFORMATION
  Report Type: 
  Country: None (occurrence: None)
  Receive Date: 20120124
  Receipt Date: 20120110
  Transmission Date: 20120608
  Serious: Yes (Hospitalization, Other)
  Sender: FDA-Public Use
  Company Number: 2011PROUSA00706

PATIENT
  Age: 52 Year
  Sex: Male
  Weight: 75 kg

DRUGS (13)
  1. PROVENGE [Suspect]
     Dosage: 250 ML, SINGLE, INTRAVENOUS
     Route: 042
     Dates: start: 20111021, end: 20111021
  2. PROVENGE [Suspect]
     Indication: PROSTATE CANCER METASTATIC
     Dosage: 250 ML, SINGLE, INTRAVENOUS
     Route: 042
     Dates: start: 20111007, end: 20111007
  3. PROVENGE [Suspect]
     Dosage: 250 ML, SINGLE, INTRAVENOUS
     Route: 042
     Dates: start: 20111104, end: 20111104
  4. ASCORBIC ACID [Concomitant]
  5. PRAVACHOL [Concomitant]
  6. LISINOPRIL [Concomitant]
  7. SINGULAIR [Concomitant]
  8. PRILOSEC [Concomitant]
  9. EFFEXOR XR (VENLAFAXINE HYDROHCHLORIDE) [Concomitant]
  10. ATIVAN [Concomitant]
  11. CHOLECALCIFEROL (COLECALCIFEROL) [Concomitant]
  12. MULTIVITAMIN (ASCORBIC ACID, CALCIUM PANTOTHENATE, ERGOCALCIFEROL, NIC [Concomitant]
  13. LUPRON DEPOT-3 MONTH (LEUPRORELIN ACETATE) [Concomitant]

REACTIONS (10)
  - HYDROURETER [None]
  - DISEASE PROGRESSION [None]
  - URETERIC OBSTRUCTION [None]
  - ABDOMINAL PAIN [None]
  - HYDRONEPHROSIS [None]
  - LYMPHADENOPATHY [None]
  - BACK PAIN [None]
  - URINARY TRACT INFECTION [None]
  - PYREXIA [None]
  - CHILLS [None]
